FAERS Safety Report 12191178 (Version 1)
Quarter: 2016Q1

REPORT INFORMATION
  Report Type: Report from Study
  Country: BR (occurrence: BR)
  Receive Date: 20160318
  Receipt Date: 20160318
  Transmission Date: 20160526
  Serious: Yes (Death, Hospitalization)
  Sender: FDA-Public Use
  Company Number: PHHY2016BR035796

PATIENT
  Age: 43 Year
  Sex: Male
  Weight: 105 kg

DRUGS (2)
  1. DIOVAN AMLO [Suspect]
     Active Substance: AMLODIPINE\VALSARTAN
     Indication: HYPERTENSION
     Dosage: 1 DF, QD (AMLODIPINE 5 MG, VALSARTAIN 80 MG)
     Route: 048
  2. DIOVAN AMLO [Suspect]
     Active Substance: AMLODIPINE\VALSARTAN
     Dosage: 2 DF, QD (AMLODIPINE 5 MG, VALSARTAIN 80 MG)
     Route: 048

REACTIONS (6)
  - Death [Fatal]
  - Irritability [Unknown]
  - Accident [Unknown]
  - Myocardial infarction [Unknown]
  - Head injury [Unknown]
  - Coma [Unknown]

NARRATIVE: CASE EVENT DATE: 200606
